FAERS Safety Report 6393928-7 (Version None)
Quarter: 2009Q4

REPORT INFORMATION
  Report Type: 
  Country: None (occurrence: None)
  Receive Date: 20091008
  Receipt Date: 20090929
  Transmission Date: 20100525
  Serious: Yes (Hospitalization, Other)
  Sender: FDA-Public Use
  Company Number: US-AMGEN-QUU363306

PATIENT
  Sex: Female
  Weight: 66.3 kg

DRUGS (3)
  1. ENBREL [Suspect]
     Indication: RHEUMATOID ARTHRITIS
     Route: 058
     Dates: start: 20061101, end: 20090808
  2. LEVAQUIN [Suspect]
     Dates: start: 20090801
  3. IMURAN [Concomitant]
     Dates: start: 20070701, end: 20090809

REACTIONS (6)
  - CONVULSION [None]
  - FALL [None]
  - ROCKY MOUNTAIN SPOTTED FEVER [None]
  - SEPSIS [None]
  - SPINAL FRACTURE [None]
  - UPPER LIMB FRACTURE [None]
